FAERS Safety Report 10067972 (Version 2)
Quarter: 2014Q2

REPORT INFORMATION
  Report Type: Spontaneous
  Country: BR (occurrence: BR)
  Receive Date: 20140409
  Receipt Date: 20140414
  Transmission Date: 20141212
  Serious: Yes (Other)
  Sender: FDA-Public Use
  Company Number: BR-PFIZER INC-2014096713

PATIENT
  Sex: Female

DRUGS (2)
  1. CELEBRA [Suspect]
     Indication: ARTHROPATHY
     Dosage: 200 MG, TWICE A DAY (EACH 12 HOURS)
     Route: 048
  2. FRONTAL [Suspect]
     Dosage: UNK
     Dates: end: 2011

REACTIONS (4)
  - Ligament sprain [Unknown]
  - Arthropathy [Unknown]
  - Arthropathy [Unknown]
  - Pain [Not Recovered/Not Resolved]
